FAERS Safety Report 18659300 (Version 1)
Quarter: 2020Q4

REPORT INFORMATION
  Report Type: Report from Study
  Country: BR (occurrence: BR)
  Receive Date: 20201224
  Receipt Date: 20201224
  Transmission Date: 20210114
  Serious: Yes (Other)
  Sender: FDA-Public Use
  Company Number: NVSC2019BR071217

PATIENT
  Age: 58 Year
  Sex: Male

DRUGS (2)
  1. COSENTYX [Suspect]
     Active Substance: SECUKINUMAB
     Dosage: UNK
     Route: 065
     Dates: start: 20191209, end: 20200825
  2. COSENTYX [Suspect]
     Active Substance: SECUKINUMAB
     Indication: PSORIATIC ARTHROPATHY
     Dosage: 150 MG, Q4W
     Route: 065
     Dates: start: 20190624

REACTIONS (11)
  - Influenza [Recovering/Resolving]
  - Spinal fracture [Recovering/Resolving]
  - Discomfort [Not Recovered/Not Resolved]
  - Rib fracture [Recovering/Resolving]
  - Pain [Not Recovered/Not Resolved]
  - Viral infection [Recovering/Resolving]
  - Hypokinesia [Unknown]
  - Fall [Recovering/Resolving]
  - Brain injury [Recovering/Resolving]
  - Asthenia [Unknown]
  - Spinal deformity [Unknown]

NARRATIVE: CASE EVENT DATE: 20191202
